FAERS Safety Report 19165041 (Version 1)
Quarter: 2021Q2

REPORT INFORMATION
  Report Type: Spontaneous
  Country: GB (occurrence: GB)
  Receive Date: 20210421
  Receipt Date: 20210421
  Transmission Date: 20210717
  Serious: Yes (Other)
  Sender: FDA-Public Use
  Company Number: GB-TEVA-2021-GB-1901868

PATIENT
  Age: 61 Year
  Sex: Female
  Weight: 66 kg

DRUGS (2)
  1. DOXYCYCLINE. [Suspect]
     Active Substance: DOXYCYCLINE
     Dosage: 100 MILLIGRAM DAILY; TAKE TWO NOW THEN ONE DAILY FOR 4 DAYS.
  2. DOXYCYCLINE. [Suspect]
     Active Substance: DOXYCYCLINE
     Dosage: 200 MILLIGRAM DAILY; TAKE TWO NOW THEN ONE DAILY FOR 4 DAYS.
     Dates: start: 20210315

REACTIONS (1)
  - Abdominal pain [Recovered/Resolved]
